FAERS Safety Report 5100586-8 (Version None)
Quarter: 2006Q3

REPORT INFORMATION
  Report Type: 
  Country: None (occurrence: None)
  Receive Date: 20060907
  Receipt Date: 20060907
  Transmission Date: 20061208
  Serious: Yes (Other)
  Sender: FDA-Public Use
  Company Number: None

PATIENT
  Age: 18 Year
  Sex: Female

DRUGS (3)
  1. ORTHO TRI-CYCLEN [Suspect]
     Indication: DYSMENORRHOEA
     Dates: start: 20040811
  2. LO-ESTRIN [Suspect]
     Indication: METRORRHAGIA
     Dates: start: 20060327
  3. ESTROSTEP [Suspect]

REACTIONS (3)
  - ACTIVITIES OF DAILY LIVING IMPAIRED [None]
  - DYSMENORRHOEA [None]
  - METRORRHAGIA [None]
